FAERS Safety Report 10175756 (Version 2)
Quarter: 2014Q2

REPORT INFORMATION
  Report Type: Report from Study
  Country: VE (occurrence: VE)
  Receive Date: 20140516
  Receipt Date: 20140528
  Transmission Date: 20141212
  Serious: Yes (Hospitalization, Other)
  Sender: FDA-Public Use
  Company Number: VE-ROCHE-1402012

PATIENT
  Age: 11 Year
  Sex: Female

DRUGS (2)
  1. XOLAIR [Suspect]
     Indication: ASTHMA
     Route: 058
     Dates: start: 201302, end: 201302
  2. XOLAIR [Suspect]
     Route: 058
     Dates: start: 201402, end: 201402

REACTIONS (3)
  - Bronchopneumonia [Not Recovered/Not Resolved]
  - Asthma [Recovered/Resolved]
  - Dysphonia [Recovered/Resolved]
